FAERS Safety Report 6133726-2 (Version None)
Quarter: 2009Q1

REPORT INFORMATION
  Report Type: 
  Country: None (occurrence: None)
  Receive Date: 20090326
  Receipt Date: 20090320
  Transmission Date: 20090719
  Serious: Yes (Other)
  Sender: FDA-Public Use
  Company Number: B0566738A

PATIENT
  Age: 37 Year
  Sex: Female

DRUGS (6)
  1. TELZIR [Suspect]
     Indication: HIV INFECTION
     Route: 048
     Dates: start: 20050128, end: 20050415
  2. EPIVIR [Suspect]
     Indication: HIV INFECTION
     Route: 048
  3. NORVIR [Suspect]
     Indication: HIV INFECTION
     Route: 048
  4. VIREAD [Suspect]
     Indication: HIV INFECTION
     Route: 048
  5. REYATAZ [Suspect]
     Indication: HIV INFECTION
     Route: 048
  6. ZERIT [Suspect]
     Indication: HIV INFECTION
     Route: 048

REACTIONS (3)
  - ADVERSE EVENT [None]
  - HEPATOTOXICITY [None]
  - LIPODYSTROPHY ACQUIRED [None]
